FAERS Safety Report 8046283-0 (Version None)
Quarter: 2012Q1

REPORT INFORMATION
  Report Type: 
  Country: None (occurrence: None)
  Receive Date: 20120113
  Receipt Date: 20120104
  Transmission Date: 20120608
  Serious: Yes (Hospitalization, Other)
  Sender: FDA-Public Use
  Company Number: GXBR2012US000442

PATIENT
  Sex: Male
  Weight: 80.726 kg

DRUGS (4)
  1. ENOXAPARIN SODIUM [Suspect]
     Dosage: 80 MG, QD
     Route: 058
  2. ENOXAPARIN SODIUM [Suspect]
     Dosage: 20 MG, BID
     Route: 058
     Dates: end: 20111201
  3. LUPRON [Suspect]
     Indication: PROSTATE CANCER RECURRENT
     Dosage: UNK DF, Q3MO
     Dates: start: 20111001
  4. ENOXAPARIN SODIUM [Suspect]
     Indication: DEEP VEIN THROMBOSIS
     Dosage: 80 MG, BID
     Route: 058
     Dates: start: 20110401

REACTIONS (5)
  - PROSTATE CANCER RECURRENT [None]
  - POST PROCEDURAL HAEMORRHAGE [None]
  - URETHRAL STENOSIS [None]
  - URINARY INCONTINENCE [None]
  - URINARY BLADDER HAEMORRHAGE [None]
